FAERS Safety Report 6086930-6 (Version None)
Quarter: 2009Q1

REPORT INFORMATION
  Report Type: 
  Country: None (occurrence: None)
  Receive Date: 20090223
  Receipt Date: 20090216
  Transmission Date: 20090719
  Serious: Yes (Hospitalization)
  Sender: FDA-Public Use
  Company Number: US-AVENTIS-200818524US

PATIENT
  Sex: Female
  Weight: 61.05 kg

DRUGS (21)
  1. LANTUS [Suspect]
     Dosage: DOSE: 15-25
     Route: 058
     Dates: start: 20041111
  2. OPTICLIK (INSULIN INJECTION PEN) [Suspect]
     Dates: start: 20040101
  3. SYNTHROID [Concomitant]
     Dosage: DOSE: 50 UG 1 TAB
  4. VALIUM [Concomitant]
     Dosage: DOSE: 10 MG 1 TAB BID
  5. COUMADIN [Concomitant]
     Dosage: DOSE: Q PM
  6. DIGOXIN [Concomitant]
     Dosage: DOSE: 0.125  1 TAB
  7. NITRO                              /00003201/ [Concomitant]
     Dosage: DOSE: .4 MG
     Route: 060
  8. AZOPT [Concomitant]
     Dosage: DOSE: 1 GTT OU
     Route: 047
  9. XALATAN [Concomitant]
     Dosage: DOSE: 0.005%
  10. LASIX [Concomitant]
     Dosage: DOSE: 40 MG  1 TAB
  11. LABETOLOL [Concomitant]
     Dosage: DOSE: 200 MG 1/2
  12. PREVACID [Concomitant]
     Dosage: DOSE: 30 MG 1 TAB
  13. AVAPRO [Concomitant]
     Dosage: DOSE: 150 MG
  14. TRANSDERM-NITRO [Concomitant]
     Dosage: DOSE: 0.2 MG PER HOUR ON AM OFF HSR HOUON AM OFF HS
  15. ACTOS [Concomitant]
     Dosage: DOSE: 30 MG 1 TAB
  16. PRAVACHOL [Concomitant]
     Dosage: DOSE: 20 MG 1 TAB
  17. ZETIA [Concomitant]
     Dosage: DOSE: 10 MG 1 TAB
  18. PRESSURE VISION [Concomitant]
     Dosage: DOSE QUANTITY: 1
  19. DARVOCET-N 100 [Concomitant]
     Dosage: DOSE: 1 TAB Q 4 HOURS
  20. UNKNOWN DRUG [Concomitant]
  21. HYDRALAZINE HCL [Concomitant]
     Dosage: DOSE: 10 MG 1 TAB

REACTIONS (5)
  - BLOOD GLUCOSE DECREASED [None]
  - BLOOD GLUCOSE INCREASED [None]
  - DECREASED APPETITE [None]
  - INJECTION SITE PRURITUS [None]
  - THROMBOSIS [None]
